FAERS Safety Report 7349519-4 (Version None)
Quarter: 2011Q1

REPORT INFORMATION
  Report Type: 
  Country: None (occurrence: None)
  Receive Date: 20110314
  Receipt Date: 20101224
  Transmission Date: 20110831
  Serious: Yes (Other)
  Sender: FDA-Public Use
  Company Number: US-ABBOTT-10P-163-0692790-00

PATIENT
  Age: 52 Year
  Sex: Female
  Weight: 94.886 kg

DRUGS (5)
  1. DEPAKOTE [Suspect]
     Indication: CONVULSION
     Route: 048
     Dates: start: 20100829, end: 20101001
  2. DEPAKOTE [Suspect]
     Dates: start: 20101004
  3. COZAAR [Concomitant]
     Indication: PRODUCT USED FOR UNKNOWN INDICATION
     Dates: start: 20100501
  4. LEXAPRO [Concomitant]
     Indication: PRODUCT USED FOR UNKNOWN INDICATION
     Dosage: NO LONGER WORKING
     Dates: end: 20100501
  5. PRISTIQ [Suspect]
     Indication: DEPRESSION
     Dosage: SLOW RELEASE TABLETS
     Route: 048
     Dates: start: 20100501, end: 20100901

REACTIONS (3)
  - CONVULSION [None]
  - CONTUSION [None]
  - MIGRAINE [None]
